FAERS Safety Report 5235911-0 (Version None)
Quarter: 2007Q1

REPORT INFORMATION
  Report Type: 
  Country: None (occurrence: None)
  Receive Date: 20061208
  Receipt Date: 20051206
  Transmission Date: 20070707
  Serious: Yes (Other)
  Sender: FDA-Public Use
  Company Number: 2005UW18386

PATIENT
  Age: 70 Year
  Sex: Female
  Weight: 52.163 kg

DRUGS (4)
  1. CRESTOR [Suspect]
     Indication: BLOOD CHOLESTEROL INCREASED
     Dosage: 10 MG
     Dates: start: 20040701
  2. LOPRESSOR [Concomitant]
  3. ZETIA [Concomitant]
  4. ACETYLSALICYLIC ACID SRT [Concomitant]

REACTIONS (1)
  - HALLUCINATION [None]
